FAERS Safety Report 20598931 (Version 1)
Quarter: 2022Q1

REPORT INFORMATION
  Report Type: Other
  Country: US (occurrence: None)
  Receive Date: 20220315
  Receipt Date: 20220315
  Transmission Date: 20220423
  Serious: Yes (Other)
  Sender: FDA-Public Use
  Company Number: US-ROCHE-3041141

PATIENT
  Sex: Female
  Weight: 77.180 kg

DRUGS (7)
  1. OCREVUS [Suspect]
     Active Substance: OCRELIZUMAB
     Indication: Primary progressive multiple sclerosis
     Dosage: YES?LAST DATE OF TREATMENT : 23/11/2021
     Route: 042
     Dates: start: 20180518
  2. OCREVUS [Suspect]
     Active Substance: OCRELIZUMAB
     Route: 042
  3. OXYCODONE [Concomitant]
     Active Substance: OXYCODONE
  4. PREGABALIN [Concomitant]
     Active Substance: PREGABALIN
     Route: 048
  5. ROPINIROLE [Concomitant]
     Active Substance: ROPINIROLE
     Dosage: TAKE 2 TABLETS BY MOUTH EVERY EVENING FOR RLS
     Route: 048
  6. TRAZODONE [Concomitant]
     Active Substance: TRAZODONE HYDROCHLORIDE
  7. NORTRIPTYLINE [Concomitant]
     Active Substance: NORTRIPTYLINE
     Dosage: 30 MG NIGHTLY

REACTIONS (29)
  - Cervix carcinoma [Unknown]
  - Herpes simplex [Unknown]
  - Normal pressure hydrocephalus [Unknown]
  - Circadian rhythm sleep disorder [Unknown]
  - Insomnia [Unknown]
  - Pain [Unknown]
  - Neuralgia [Unknown]
  - Spondylolysis [Unknown]
  - Gait disturbance [Unknown]
  - Headache [Unknown]
  - Depression [Unknown]
  - Hyperlipidaemia [Unknown]
  - Amnesia [Unknown]
  - Diarrhoea [Unknown]
  - Flank pain [Unknown]
  - Anal incontinence [Unknown]
  - Urinary incontinence [Unknown]
  - Gastrooesophageal reflux disease [Unknown]
  - Back pain [Unknown]
  - Osteopenia [Unknown]
  - Goitre [Unknown]
  - Epicondylitis [Unknown]
  - Rotator cuff syndrome [Unknown]
  - Lumbar radiculopathy [Unknown]
  - Cough [Unknown]
  - Arthralgia [Unknown]
  - Cognitive disorder [Unknown]
  - Chest pain [Unknown]
  - Lower respiratory tract congestion [Unknown]
